FAERS Safety Report 6118386-9 (Version None)
Quarter: 2009Q1

REPORT INFORMATION
  Report Type: 
  Country: None (occurrence: None)
  Receive Date: 20090314
  Receipt Date: 20090216
  Transmission Date: 20090719
  Serious: No
  Sender: FDA-Public Use
  Company Number: US-ABBOTT-09P-163-0557782-00

PATIENT
  Sex: Female
  Weight: 88.53 kg

DRUGS (10)
  1. HUMIRA [Suspect]
     Indication: PSORIASIS
     Route: 058
     Dates: start: 20081113, end: 20081113
  2. HUMIRA [Suspect]
     Route: 058
  3. ATENOLOL [Concomitant]
     Indication: HYPERTENSION
     Route: 048
  4. QUINAPRIL HYDROCHLORIDE [Concomitant]
     Indication: HYPERTENSION
     Dosage: FORM: 20/12.5 MG
     Route: 048
  5. ZOCOR [Concomitant]
     Indication: BLOOD CHOLESTEROL
     Route: 048
  6. CALCIUM [Concomitant]
     Indication: DRUG USE FOR UNKNOWN INDICATION
     Route: 048
  7. CENTRUM SILVER [Concomitant]
     Indication: DRUG USE FOR UNKNOWN INDICATION
     Route: 048
  8. ASPIRIN [Concomitant]
     Indication: DRUG USE FOR UNKNOWN INDICATION
     Route: 048
  9. ATARAX [Concomitant]
     Indication: PSORIASIS
     Route: 061
     Dates: start: 20090101
  10. XYZAL [Concomitant]
     Indication: URTICARIA
     Route: 048
     Dates: start: 20090101

REACTIONS (2)
  - INJECTION SITE URTICARIA [None]
  - NASOPHARYNGITIS [None]
